FAERS Safety Report 19890304 (Version 1)
Quarter: 2021Q3

REPORT INFORMATION
  Report Type: Spontaneous
  Country: US (occurrence: US)
  Receive Date: 20210927
  Receipt Date: 20210927
  Transmission Date: 20211014
  Serious: Yes (Hospitalization, Other)
  Sender: FDA-Public Use
  Company Number: US-TEVA-2021-US-1957240

PATIENT
  Age: 66 Year
  Sex: Female

DRUGS (7)
  1. AJOVY [Suspect]
     Active Substance: FREMANEZUMAB-VFRM
     Route: 065
  2. ONDANSETRON [Concomitant]
     Active Substance: ONDANSETRON
     Indication: MIGRAINE
     Route: 065
  3. THORAZINE [Suspect]
     Active Substance: CHLORPROMAZINE
     Route: 065
  4. MAXALT [Concomitant]
     Active Substance: RIZATRIPTAN BENZOATE
     Indication: MIGRAINE
     Route: 065
  5. COPAXONE [Suspect]
     Active Substance: GLATIRAMER ACETATE
     Route: 065
  6. REGLAN [Concomitant]
     Active Substance: METOCLOPRAMIDE HYDROCHLORIDE
     Indication: MIGRAINE
     Route: 065
  7. DILAUDID [Concomitant]
     Active Substance: HYDROMORPHONE HYDROCHLORIDE
     Indication: MIGRAINE
     Route: 065

REACTIONS (23)
  - Bronchitis [Unknown]
  - Hospitalisation [Unknown]
  - Sepsis [Unknown]
  - Productive cough [Unknown]
  - Temperature intolerance [Unknown]
  - Device delivery system issue [Unknown]
  - Excessive cerumen production [Unknown]
  - Rales [Unknown]
  - Multiple sclerosis [Unknown]
  - Illness [Unknown]
  - Device issue [Unknown]
  - Wheezing [Unknown]
  - Hypertension [Unknown]
  - Sleep disorder [Unknown]
  - Pneumonia [Unknown]
  - Dystonia [Unknown]
  - Therapeutic product effect decreased [Unknown]
  - Exposure to SARS-CoV-2 [Unknown]
  - Humidity intolerance [Unknown]
  - Streptococcal infection [Unknown]
  - Injection site swelling [Unknown]
  - Fatigue [Unknown]
  - Migraine [Recovering/Resolving]
